FAERS Safety Report 23672136 (Version 6)
Quarter: 2024Q2

REPORT INFORMATION
  Report Type: Spontaneous
  Country: CN (occurrence: CN)
  Receive Date: 20240326
  Receipt Date: 20240521
  Transmission Date: 20240715
  Serious: Yes (Hospitalization)
  Sender: FDA-Public Use
  Company Number: CN-002147023-NVSC2024CN062968

PATIENT
  Age: 55 Year
  Sex: Male

DRUGS (6)
  1. COSENTYX [Suspect]
     Active Substance: SECUKINUMAB
     Indication: Psoriasis
     Dosage: 2 DOSAGE FORM, PER TIME (ABOUT 30 INJECTIONS)
     Route: 058
     Dates: start: 20220908, end: 20230411
  2. COSENTYX [Suspect]
     Active Substance: SECUKINUMAB
     Dosage: 2 DOSAGE FORM, PER TIME (ABOUT 30 INJECTIONS)
     Route: 058
     Dates: start: 20220908, end: 20230411
  3. COSENTYX [Suspect]
     Active Substance: SECUKINUMAB
     Dosage: 2 DOSAGE FORM, PER TIME (ABOUT 20 INJECTIONS)
     Route: 058
     Dates: start: 20230919, end: 20240116
  4. NIFEDIPINE [Concomitant]
     Active Substance: NIFEDIPINE
     Indication: Hypertension
     Dosage: UNK (SUSTAINED-RELEASE TABLET)
     Route: 065
  5. FOSINOPRIL SODIUM [Concomitant]
     Active Substance: FOSINOPRIL SODIUM
     Indication: Hypertension
     Dosage: UNK
     Route: 065
  6. GLIPIZIDE [Concomitant]
     Active Substance: GLIPIZIDE
     Indication: Diabetes mellitus
     Dosage: UNK (SUSTAINED-RELEASE TABLETS)
     Route: 065

REACTIONS (10)
  - Cough [Unknown]
  - Oropharyngeal discomfort [Unknown]
  - Hypoaesthesia [Recovering/Resolving]
  - Gait disturbance [Recovering/Resolving]
  - Fall [Recovering/Resolving]
  - Nervous system disorder [Unknown]
  - Nasopharyngitis [Unknown]
  - Central nervous system viral infection [Unknown]
  - Loss of personal independence in daily activities [Recovering/Resolving]
  - Asthenia [Unknown]

NARRATIVE: CASE EVENT DATE: 20240117
